FAERS Safety Report 9928924 (Version 1)
Quarter: 2014Q1

REPORT INFORMATION
  Report Type: Report from Study
  Country: DE (occurrence: DE)
  Receive Date: 20140227
  Receipt Date: 20140227
  Transmission Date: 20141002
  Serious: Yes (Life-Threatening, Hospitalization)
  Sender: FDA-Public Use
  Company Number: DE-BAXTER-2014BAX009814

PATIENT
  Sex: Male
  Weight: 79 kg

DRUGS (7)
  1. IMMUNE GLOBULIN SUBCUTANEOUS (HUMAN), 20% [Suspect]
     Indication: IMMUNODEFICIENCY COMMON VARIABLE
     Route: 058
     Dates: start: 20140217
  2. IMMUNE GLOBULIN SUBCUTANEOUS (HUMAN), 20% [Suspect]
     Route: 058
     Dates: start: 20140224
  3. IMMUNE GLOBULIN SUBCUTANEOUS (HUMAN), 20% [Suspect]
     Route: 058
     Dates: start: 20140224
  4. NASONEX [Concomitant]
     Indication: BRONCHITIS
     Dosage: 1 SPRAY
     Route: 045
  5. ACETYLCYSTEINE [Concomitant]
     Indication: BRONCHITIS
     Route: 048
  6. ANGOCIN [Concomitant]
     Indication: BRONCHITIS
     Route: 048
  7. AMOCLAV [Concomitant]
     Indication: BRONCHITIS
     Dosage: 875/125, 1 TABLET
     Route: 048

REACTIONS (1)
  - Myocardial infarction [Not Recovered/Not Resolved]
